FAERS Safety Report 18731373 (Version 2)
Quarter: 2021Q2

REPORT INFORMATION
  Report Type: Spontaneous
  Country: US (occurrence: US)
  Receive Date: 20210112
  Receipt Date: 20210407
  Transmission Date: 20210717
  Serious: Yes (Death, Hospitalization, Other)
  Sender: FDA-Public Use
  Company Number: US-SEBELA IRELAND LIMITED-2020SEB00154

PATIENT
  Age: 57 Year
  Sex: Male
  Weight: 81.18 kg

DRUGS (7)
  1. UNSPECIFIED ANTIBIOTIC [Concomitant]
     Active Substance: UNSPECIFIED INGREDIENT
  2. IMURAN [Suspect]
     Active Substance: AZATHIOPRINE
     Indication: PROPHYLAXIS AGAINST TRANSPLANT REJECTION
     Dosage: UNK, 1X/DAY
     Route: 048
     Dates: start: 20170106, end: 201901
  3. PREDNISONE. [Suspect]
     Active Substance: PREDNISONE
     Dosage: UNK
  4. UNSPECIFIED PAIN MEDICATION [Suspect]
     Active Substance: UNSPECIFIED INGREDIENT
     Dosage: UNK
     Dates: start: 2018
  5. GABAPENTIN. [Suspect]
     Active Substance: GABAPENTIN
     Dosage: UNK
     Dates: start: 201708
  6. UNSPECIFIED OPIOID PAIN MEDICATION [Concomitant]
  7. UNSPECIFIED MEDICATIONS [Concomitant]
     Active Substance: UNSPECIFIED INGREDIENT

REACTIONS (17)
  - Interstitial lung disease [Fatal]
  - Off label use [Recovered/Resolved]
  - Wound [Recovered/Resolved]
  - Asphyxia [Recovered/Resolved]
  - Diabetes mellitus [Unknown]
  - COVID-19 [Fatal]
  - Erythema [Unknown]
  - Obesity [Unknown]
  - Fungal infection [Recovered/Resolved]
  - Infection [Recovered/Resolved]
  - Wound dehiscence [Recovered/Resolved]
  - Catheterisation cardiac [Recovered/Resolved]
  - Immunodeficiency [Unknown]
  - Neuralgia [Unknown]
  - Lung transplant rejection [Unknown]
  - Hospitalisation [Recovered/Resolved]
  - Hunger [Unknown]

NARRATIVE: CASE EVENT DATE: 201701
